FAERS Safety Report 5933250-3 (Version None)
Quarter: 2008Q4

REPORT INFORMATION
  Report Type: 
  Country: None (occurrence: None)
  Receive Date: 20081028
  Receipt Date: 20081023
  Transmission Date: 20090506
  Serious: Yes (Other)
  Sender: FDA-Public Use
  Company Number: FR-ROXANE LABORATORIES, INC.-2008-RO-00151RO

PATIENT
  Age: 66 Year
  Sex: Male

DRUGS (5)
  1. CLARITHROMYCIN [Suspect]
     Indication: SINUSITIS
     Dosage: 1000MG
  2. CARBAMAZEPINE [Suspect]
     Indication: FRONTAL LOBE EPILEPSY
     Dosage: 800MG
  3. PHENOBARBITAL TAB [Suspect]
     Indication: FRONTAL LOBE EPILEPSY
     Dosage: 100MG
  4. AMOXICILLIN + CLAVULANATE POTASSIUM [Concomitant]
     Indication: SINUSITIS
  5. AMOXICILLIN + CLAVULANATE POTASSIUM [Concomitant]
     Indication: DRUG INTERACTION

REACTIONS (2)
  - DRUG INTERACTION [None]
  - DRUG TOXICITY [None]
